FAERS Safety Report 9277967 (Version 1)
Quarter: 2013Q2

REPORT INFORMATION
  Report Type: Spontaneous
  Country: IT (occurrence: IT)
  Receive Date: 20130508
  Receipt Date: 20130508
  Transmission Date: 20140414
  Serious: Yes (Hospitalization)
  Sender: FDA-Public Use
  Company Number: IT-JNJFOC-20130415555

PATIENT
  Age: 53 Year
  Sex: Female
  Weight: 68 kg

DRUGS (9)
  1. SERENASE [Suspect]
     Indication: PRODUCT USED FOR UNKNOWN INDICATION
     Route: 030
     Dates: start: 20130319, end: 20130319
  2. LAMOTRIGINA [Suspect]
     Indication: EPILEPSY
     Route: 048
     Dates: start: 19950103, end: 20130409
  3. CARBOLITIUM [Suspect]
     Indication: PRODUCT USED FOR UNKNOWN INDICATION
     Route: 048
     Dates: start: 20130313, end: 20130319
  4. DOMINANS [Suspect]
     Indication: PRODUCT USED FOR UNKNOWN INDICATION
     Route: 048
     Dates: start: 20130118, end: 20130321
  5. XERISTAR [Suspect]
     Indication: PRODUCT USED FOR UNKNOWN INDICATION
     Route: 048
     Dates: start: 20130313, end: 20130317
  6. CIPRALEX [Suspect]
     Indication: PRODUCT USED FOR UNKNOWN INDICATION
     Route: 048
     Dates: start: 20130118, end: 20130319
  7. LARGACTIL [Suspect]
     Indication: PRODUCT USED FOR UNKNOWN INDICATION
     Route: 030
     Dates: start: 20130319, end: 20130319
  8. TOLEP [Suspect]
     Indication: PRODUCT USED FOR UNKNOWN INDICATION
     Route: 048
     Dates: start: 19950205, end: 20130318
  9. REMERON [Suspect]
     Indication: PRODUCT USED FOR UNKNOWN INDICATION
     Route: 048
     Dates: start: 20130103, end: 20130313

REACTIONS (6)
  - Coma [Recovered/Resolved]
  - Hyperthermia malignant [Recovered/Resolved]
  - Hypertonia [Recovered/Resolved]
  - Muscle rigidity [Recovered/Resolved]
  - Neuroleptic malignant syndrome [Recovered/Resolved]
  - Rhabdomyolysis [Recovered/Resolved]
